FAERS Safety Report 8101087-5 (Version None)
Quarter: 2012Q1

REPORT INFORMATION
  Report Type: 
  Country: None (occurrence: None)
  Receive Date: 20120129
  Receipt Date: 20110909
  Transmission Date: 20120608
  Serious: No
  Sender: FDA-Public Use
  Company Number: US-ABBOTT-11P-163-0852888-00

PATIENT
  Sex: Female
  Weight: 99.88 kg

DRUGS (17)
  1. METHOTREXATE [Concomitant]
     Indication: RHEUMATOID ARTHRITIS
  2. GLUCOPHAGE [Concomitant]
     Indication: DIABETES MELLITUS
  3. ZETIA [Concomitant]
     Indication: BLOOD CHOLESTEROL INCREASED
  4. LANOXIN [Concomitant]
     Indication: CARDIAC DISORDER
  5. CELEXA [Concomitant]
     Indication: ANXIETY
  6. ALLOPURINOL [Concomitant]
     Indication: GOUT
  7. FLUTICASONE PROPIONATE [Concomitant]
     Indication: RHINITIS ALLERGIC
  8. TRAMADOL HCL [Concomitant]
     Indication: ARTHRALGIA
  9. LYRICA [Concomitant]
     Indication: ARTHRITIS
  10. LISINOPRIL [Concomitant]
     Indication: HYPERTENSION
  11. ROPINIROLE [Concomitant]
     Indication: PARKINSON'S DISEASE
  12. FOLIC ACID [Concomitant]
     Indication: VITAMIN SUPPLEMENTATION
  13. HUMIRA [Suspect]
     Indication: RHEUMATOID ARTHRITIS
     Route: 058
     Dates: start: 20110321
  14. ATENOLOL [Concomitant]
     Indication: HYPERTENSION
  15. FLEXERIL [Concomitant]
     Indication: MUSCLE SPASMS
  16. FLUTICASONE PROPIONATE [Concomitant]
     Indication: NASAL INFLAMMATION
  17. NOVOLIN 70/30 [Concomitant]
     Indication: DIABETES MELLITUS

REACTIONS (5)
  - PAIN IN EXTREMITY [None]
  - CHEST DISCOMFORT [None]
  - COUGH [None]
  - INFLUENZA LIKE ILLNESS [None]
  - BEDRIDDEN [None]
